FAERS Safety Report 15291009 (Version 1)
Quarter: 2018Q3

REPORT INFORMATION
  Report Type: Spontaneous
  Country: CN (occurrence: CN)
  Receive Date: 20180817
  Receipt Date: 20180817
  Transmission Date: 20181010
  Serious: Yes (Hospitalization)
  Sender: FDA-Public Use
  Company Number: PHHY2018CN070099

PATIENT
  Age: 42 Year
  Sex: Female

DRUGS (1)
  1. METFORMIN [Suspect]
     Active Substance: METFORMIN HYDROCHLORIDE
     Indication: PRODUCT USED FOR UNKNOWN INDICATION
     Dosage: 100 DF, UNK (500 MG EACH)
     Route: 065

REACTIONS (10)
  - Hypoglycaemia [Recovered/Resolved]
  - Respiratory arrest [Recovered/Resolved]
  - Cardiac arrest [Recovered/Resolved]
  - Nausea [Recovering/Resolving]
  - Loss of consciousness [Recovering/Resolving]
  - Lactic acidosis [Recovered/Resolved]
  - Toxicity to various agents [Recovered/Resolved]
  - Metabolic acidosis [Recovered/Resolved]
  - Hyperlactacidaemia [Recovered/Resolved]
  - Vomiting [Recovering/Resolving]
